FAERS Safety Report 9096983 (Version 1)
Quarter: 2013Q1

REPORT INFORMATION
  Report Type: Spontaneous
  Country: US (occurrence: None)
  Receive Date: 20130124
  Receipt Date: 20130124
  Transmission Date: 20140127
  Serious: Yes (Hospitalization)
  Sender: FDA-Public Use
  Company Number: ACO_33831_2013

PATIENT
  Age: 72 Year
  Sex: Male
  Weight: 62.4 kg

DRUGS (13)
  1. AMPYRA (DALFAMPRIDINE) TABLET, 10MG [Suspect]
     Indication: MULTIPLE SCLEROSIS
     Route: 048
  2. BETAMETHASONE (BETAMETHASONE) [Concomitant]
  3. COLLAGENASE (COLLAGENASE) [Concomitant]
  4. BACLOFEN (BACLOFEN) [Concomitant]
  5. VITAMIN B12 (CYANOCOBALAMIN) [Concomitant]
  6. ERGOCALCIFEROL (ERGOCALCIFEROL) [Concomitant]
  7. LOTREL (AMLODIPINE BESILATE, BENAZEPRIL HYDROCHLORIDE) [Concomitant]
  8. LOTEMAX (LOTEPREDNOL ETABONATE) [Concomitant]
  9. METHOCARBAMOL (METHOCARBAMOL) [Concomitant]
  10. SINGULAIR [Concomitant]
  11. PETROLATUM (PARAFFIN) [Concomitant]
  12. HYDROCHLOROTHIAZIDE (HYDROCHLOROTHIAZIDE) [Concomitant]
  13. CLARINEX (DESLORATADINE) [Concomitant]

REACTIONS (2)
  - Wound infection [None]
  - Creatinine renal clearance decreased [None]
